FAERS Safety Report 10409330 (Version 1)
Quarter: 2014Q1

REPORT INFORMATION
  Report Type: Spontaneous
  Country: US (occurrence: None)
  Receive Date: 20140131
  Receipt Date: 20140131
  Transmission Date: 20141002
  Serious: Yes (Other)
  Sender: FDA-Public Use
  Company Number: 101094U

PATIENT
  Age: 56 Year
  Sex: Female

DRUGS (2)
  1. KEPPRA [Suspect]
     Indication: CONVULSION
     Dosage: 1 TABLET DAILY FOR 2 WEEKS
     Dates: start: 201210, end: 201210
  2. MAGNESIUM [Concomitant]

REACTIONS (4)
  - Convulsion [None]
  - Dizziness [None]
  - Diarrhoea [None]
  - Intentional drug misuse [None]
